FAERS Safety Report 14733974 (Version 2)
Quarter: 2018Q2

REPORT INFORMATION
  Report Type: Spontaneous
  Country: JP (occurrence: JP)
  Receive Date: 20180409
  Receipt Date: 20180614
  Transmission Date: 20180711
  Serious: Yes (Hospitalization, Other)
  Sender: FDA-Public Use
  Company Number: JP-GLAXOSMITHKLINE-JP2018JPN055469

PATIENT
  Age: 88 Year
  Sex: Male

DRUGS (1)
  1. VALTREX [Suspect]
     Active Substance: VALACYCLOVIR HYDROCHLORIDE
     Indication: HERPES ZOSTER
     Dosage: 3000 MG, 1D
     Route: 048

REACTIONS (8)
  - Blood urea increased [Unknown]
  - Toxic encephalopathy [Unknown]
  - Bradycardia [Unknown]
  - Fluid intake reduced [Unknown]
  - Hypotension [Unknown]
  - Decreased appetite [Unknown]
  - Blood creatinine increased [Unknown]
  - Altered state of consciousness [Unknown]
